FAERS Safety Report 8284034-5 (Version None)
Quarter: 2012Q2

REPORT INFORMATION
  Report Type: 
  Country: None (occurrence: None)
  Receive Date: 20120413
  Receipt Date: 20111007
  Transmission Date: 20120825
  Serious: No
  Sender: FDA-Public Use
  Company Number: US-ASTRAZENECA-2010SE44693

PATIENT
  Age: 56 Year
  Sex: Female

DRUGS (12)
  1. NEXIUM [Suspect]
     Indication: GASTROOESOPHAGEAL REFLUX DISEASE
     Route: 048
     Dates: start: 20100101
  2. BYETTA [Suspect]
     Dosage: 5 MCG/0.02 ML
     Route: 065
  3. ZYRTEC [Concomitant]
  4. NEXIUM [Suspect]
     Indication: OESOPHAGITIS
     Route: 048
     Dates: start: 20100101
  5. DIFLUCAN [Concomitant]
  6. COQ 10 [Concomitant]
  7. CELEBREX [Concomitant]
  8. VYTORIN [Concomitant]
  9. FISH OIL [Concomitant]
  10. ACTOS [Concomitant]
  11. LOTRISONE [Concomitant]
  12. LIVALO [Concomitant]

REACTIONS (3)
  - GASTROINTESTINAL TRACT IRRITATION [None]
  - HEART RATE INCREASED [None]
  - OESOPHAGEAL SPASM [None]
